FAERS Safety Report 23065812 (Version 1)
Quarter: 2023Q4

REPORT INFORMATION
  Report Type: Spontaneous
  Country: US (occurrence: US)
  Receive Date: 20231014
  Receipt Date: 20231014
  Transmission Date: 20240109
  Serious: No
  Sender: FDA-Public Use
  Company Number: US-SA-SAC20231011000964

PATIENT
  Sex: Female
  Weight: 50.8 kg

DRUGS (2)
  1. DUPIXENT [Suspect]
     Active Substance: DUPILUMAB
     Indication: Eosinophilic oesophagitis
     Dosage: 300 MG, QW
     Route: 058
  2. DUPIXENT [Suspect]
     Active Substance: DUPILUMAB
     Dosage: 300 MG, FREQUENCY: EVERY 2-3 WEEKS

REACTIONS (4)
  - Illness [Unknown]
  - Nasopharyngitis [Unknown]
  - Conjunctivitis viral [Unknown]
  - Inappropriate schedule of product administration [Unknown]
